FAERS Safety Report 4850974-X (Version None)
Quarter: 2005Q4

REPORT INFORMATION
  Report Type: 
  Country: None (occurrence: None)
  Receive Date: 20051130
  Receipt Date: 20051020
  Transmission Date: 20060501
  Serious: No
  Sender: FDA-Public Use
  Company Number: FABR-11288

PATIENT
  Age: 51 Year
  Sex: Male

DRUGS (6)
  1. FABRAZYME [Suspect]
     Indication: FABRY'S DISEASE
     Dosage: 35 MG Q2WKS IV
     Route: 042
     Dates: start: 20050801
  2. FABRAZYME [Suspect]
     Indication: FABRY'S DISEASE
     Dosage: 0.5 MG/KG Q2WKS IV
     Route: 042
     Dates: start: 20040213, end: 20040813
  3. FABRAZYME [Suspect]
     Indication: FABRY'S DISEASE
     Dosage: 1 MG/KG Q2WKS IV
     Route: 042
     Dates: start: 20010725, end: 20040130
  4. BENADRYL [Concomitant]
  5. LORATADINE [Concomitant]
  6. STEROIDS [Concomitant]

REACTIONS (5)
  - DYSPNOEA [None]
  - PHARYNGEAL ERYTHEMA [None]
  - PHARYNX DISCOMFORT [None]
  - RASH [None]
  - RASH PRURITIC [None]
